FAERS Safety Report 8958533 (Version 1)
Quarter: 2012Q4

REPORT INFORMATION
  Report Type: Spontaneous
  Country: US (occurrence: None)
  Receive Date: 20121205
  Receipt Date: 20121205
  Transmission Date: 20130627
  Serious: No
  Sender: FDA-Public Use
  Company Number: None

PATIENT

DRUGS (1)
  1. LABETALOL [Suspect]
     Indication: BLOOD PRESSURE HIGH
     Route: 048

REACTIONS (8)
  - Headache [None]
  - Chest pain [None]
  - Palpitations [None]
  - Asthenia [None]
  - Fatigue [None]
  - Bone pain [None]
  - Nasal dryness [None]
  - Visual impairment [None]
